FAERS Safety Report 7714920-3 (Version None)
Quarter: 2011Q3

REPORT INFORMATION
  Report Type: 
  Country: None (occurrence: None)
  Receive Date: 20110822
  Receipt Date: 20110812
  Transmission Date: 20111222
  Serious: Yes (Hospitalization)
  Sender: FDA-Public Use
  Company Number: DKLU1072537

PATIENT
  Age: 3 Year
  Sex: Female

DRUGS (6)
  1. KEFLEX [Concomitant]
  2. SABRIL [Suspect]
     Indication: INFANTILE SPASMS
     Dosage: 1000 MG MILLIGRAM(S), 2 IN 1 D, ORAL
     Route: 048
     Dates: start: 20110701
  3. ZANTAC [Concomitant]
  4. MIRALAX [Concomitant]
  5. MULTIVITAMIN DROPS (VIGRAN) [Concomitant]
  6. KEPPRA [Concomitant]

REACTIONS (2)
  - FAECALOMA [None]
  - URINARY TRACT INFECTION [None]
